FAERS Safety Report 7484720-0 (Version None)
Quarter: 2011Q1

REPORT INFORMATION
  Report Type: 
  Country: None (occurrence: None)
  Receive Date: 20110309
  Receipt Date: 20100928
  Transmission Date: 20110831
  Serious: Yes (Hospitalization)
  Sender: FDA-Public Use
  Company Number: 2010SP052011

PATIENT
  Sex: Female

DRUGS (6)
  1. SINGULAIR [Concomitant]
  2. BENICAR [Concomitant]
  3. SYNTHROID [Concomitant]
  4. VENTOLIN [Concomitant]
  5. SAPHRIS [Suspect]
     Indication: MANIA
     Dosage: 20 MG; HS; SL
     Route: 060
     Dates: start: 20100813, end: 20100920
  6. SAPHRIS [Suspect]
     Indication: SCHIZOPHRENIA
     Dosage: 20 MG; HS; SL
     Route: 060
     Dates: start: 20100813, end: 20100920

REACTIONS (2)
  - INAPPROPRIATE SCHEDULE OF DRUG ADMINISTRATION [None]
  - TARDIVE DYSKINESIA [None]
